FAERS Safety Report 5413741-4 (Version None)
Quarter: 2007Q3

REPORT INFORMATION
  Report Type: 
  Country: None (occurrence: None)
  Receive Date: 20070810
  Receipt Date: 20070807
  Transmission Date: 20080115
  Serious: Yes (Death)
  Sender: FDA-Public Use
  Company Number: VUSION0700012

PATIENT
  Age: 74 Year
  Sex: Female

DRUGS (2)
  1. VUSION [Suspect]
  2. PROPOFOL [Concomitant]

REACTIONS (11)
  - BLOOD ZINC INCREASED [None]
  - CARDIAC ARREST [None]
  - CEREBRAL ARTERY EMBOLISM [None]
  - CORONARY ARTERY EMBOLISM [None]
  - HEPATIC EMBOLISATION [None]
  - PULMONARY EMBOLISM [None]
  - RENAL EMBOLISM [None]
  - RESTLESSNESS [None]
  - SUDDEN DEATH [None]
  - VISCERAL CONGESTION [None]
  - WRONG DRUG ADMINISTERED [None]
